FAERS Safety Report 8812291 (Version 1)
Quarter: 2012Q4

REPORT INFORMATION
  Report Type: 
  Country: US (occurrence: US)
  Receive Date: 20120927
  Receipt Date: 20120927
  Transmission Date: 20130627
  Serious: Yes (Death, Other)
  Sender: FDA-Public Use
  Company Number: US-ROCHE-1102358

PATIENT
  Sex: Female

DRUGS (4)
  1. AVASTIN [Suspect]
     Indication: BREAST CANCER FEMALE
     Route: 065
     Dates: start: 20060925
  2. HERCEPTIN [Suspect]
     Indication: PRODUCT USED FOR UNKNOWN INDICATION
     Route: 065
     Dates: start: 20060710
  3. DOXIL (UNITED STATES) [Concomitant]
  4. ABRAXANE [Concomitant]

REACTIONS (2)
  - Disease progression [Fatal]
  - Metastases to central nervous system [Unknown]
